FAERS Safety Report 7642853-X (Version None)
Quarter: 2011Q3

REPORT INFORMATION
  Report Type: 
  Country: None (occurrence: None)
  Receive Date: 20110728
  Receipt Date: 20110725
  Transmission Date: 20111222
  Serious: Yes (Other)
  Sender: FDA-Public Use
  Company Number: AU-PFIZER INC-2011167774

PATIENT
  Age: 72 Year
  Sex: Female

DRUGS (6)
  1. XALATAN [Concomitant]
     Indication: GLAUCOMA
     Dosage: UNK
  2. VITAMIN D [Concomitant]
     Dosage: 2000 IU, UNK
  3. PREDNISONE [Concomitant]
     Indication: MYASTHENIA GRAVIS
     Dosage: 7.5 UNK, UNK
  4. TERIPARATIDE [Concomitant]
     Indication: OSTEOPOROSIS
     Dosage: UNK
  5. NEURONTIN [Suspect]
     Indication: SCIATICA
     Dosage: 200 MG, 2X/DAY
  6. MESTINON [Concomitant]
     Indication: MYASTHENIA GRAVIS
     Dosage: 240 MG; UNK

REACTIONS (5)
  - RASH [None]
  - DIPLOPIA [None]
  - PRURITUS [None]
  - SPINAL FRACTURE [None]
  - EYE MOVEMENT DISORDER [None]
